FAERS Safety Report 25810994 (Version 1)
Quarter: 2025Q3

REPORT INFORMATION
  Report Type: Spontaneous
  Country: CN (occurrence: CN)
  Receive Date: 20250917
  Receipt Date: 20250917
  Transmission Date: 20251020
  Serious: Yes (Hospitalization, Other)
  Sender: GRANULES PHARMACEUTICALS INC
  Company Number: CN-GRANULES-CN-2025GRALIT00520

PATIENT
  Age: 77 Year
  Sex: Female

DRUGS (4)
  1. PANTOPRAZOLE SODIUM [Suspect]
     Active Substance: PANTOPRAZOLE SODIUM
     Indication: Upper gastrointestinal haemorrhage
     Route: 045
  2. SOMATOSTATIN [Suspect]
     Active Substance: SOMATOSTATIN
     Indication: Upper gastrointestinal haemorrhage
     Route: 065
  3. IRESSA [Concomitant]
     Active Substance: GEFITINIB
     Indication: Lung neoplasm malignant
     Route: 065
  4. ASPIRIN [Concomitant]
     Active Substance: ASPIRIN
     Indication: Cerebral infarction
     Route: 065

REACTIONS (2)
  - Clostridium difficile colitis [Recovered/Resolved]
  - Product use in unapproved indication [Unknown]
